FAERS Safety Report 5181006-4 (Version None)
Quarter: 2006Q4

REPORT INFORMATION
  Report Type: 
  Country: None (occurrence: None)
  Receive Date: 20061214
  Receipt Date: 20061214
  Transmission Date: 20070319
  Serious: Yes (Other)
  Sender: FDA-Public Use
  Company Number: None

PATIENT

DRUGS (3)
  1. ORENCIA [Suspect]
     Dosage: 750 MG 4 WEEKS IV
     Route: 042
     Dates: start: 20061116
  2. CLINDAMYCIN [Concomitant]
  3. PREDNISOLONE [Concomitant]

REACTIONS (2)
  - ERYTHEMA NODOSUM [None]
  - PARONYCHIA [None]
